FAERS Safety Report 6488075-X (Version None)
Quarter: 2009Q4

REPORT INFORMATION
  Report Type: 
  Country: None (occurrence: None)
  Receive Date: 20091210
  Receipt Date: 20091201
  Transmission Date: 20100525
  Serious: Yes (Other)
  Sender: FDA-Public Use
  Company Number: US-PFIZER INC-2009285236

PATIENT
  Age: 54 Year
  Sex: Male
  Weight: 99.8 kg

DRUGS (3)
  1. SUTENT [Suspect]
     Indication: RENAL CELL CARCINOMA
     Dosage: 50 MG DAILY, 4 WEEKS ON AND 2 WEEKS OFF
     Route: 048
     Dates: start: 20090201, end: 20090514
  2. FERROUS SULFATE [Concomitant]
  3. MULTI-VITAMINS [Concomitant]

REACTIONS (3)
  - HYPERBILIRUBINAEMIA [None]
  - PAIN IN EXTREMITY [None]
  - TENDON DISORDER [None]
